FAERS Safety Report 4614702-5 (Version None)
Quarter: 2005Q1

REPORT INFORMATION
  Report Type: 
  Country: None (occurrence: None)
  Receive Date: 20050322
  Receipt Date: 20050309
  Transmission Date: 20050727
  Serious: Yes (Death, Hospitalization)
  Sender: FDA-Public Use
  Company Number: GB-JNJFOC-20041204064

PATIENT
  Age: 42 Year
  Sex: Male

DRUGS (1)
  1. REMICADE [Suspect]
     Indication: DRUG USE FOR UNKNOWN INDICATION
     Route: 042

REACTIONS (3)
  - INTESTINAL OBSTRUCTION [None]
  - PNEUMONIA [None]
  - SEPSIS [None]
